FAERS Safety Report 5391704-5 (Version None)
Quarter: 2007Q3

REPORT INFORMATION
  Report Type: 
  Country: None (occurrence: None)
  Receive Date: 20070719
  Receipt Date: 20070712
  Transmission Date: 20080115
  Serious: Yes (Hospitalization)
  Sender: FDA-Public Use
  Company Number: FR-MERCK-0707FRA00031

PATIENT
  Age: 82 Year
  Sex: Male

DRUGS (15)
  1. NOROXIN [Suspect]
     Indication: LITHOTRIPSY
     Route: 048
     Dates: start: 20070507, end: 20070511
  2. NOROXIN [Suspect]
     Indication: PROPHYLAXIS
     Route: 048
     Dates: start: 20070507, end: 20070511
  3. OFLOXACIN [Suspect]
     Indication: LITHOTRIPSY
     Route: 042
     Dates: start: 20070505, end: 20070506
  4. OFLOXACIN [Suspect]
     Route: 042
     Dates: start: 20070512, end: 20070513
  5. OFLOXACIN [Suspect]
     Indication: PROPHYLAXIS
     Route: 042
     Dates: start: 20070505, end: 20070506
  6. OFLOXACIN [Suspect]
     Route: 042
     Dates: start: 20070512, end: 20070513
  7. CEFTRIAXONE SODIUM [Suspect]
     Route: 042
     Dates: start: 20070514, end: 20070515
  8. CEFIXIME [Suspect]
     Route: 048
     Dates: start: 20070512, end: 20070515
  9. CEFPODOXIME PROXETIL [Suspect]
     Route: 048
     Dates: start: 20070516, end: 20070517
  10. HYDROCHLOROTHIAZIDE AND LOSARTAN POTASSIUM [Concomitant]
     Indication: HYPERTENSION
     Route: 048
  11. AMIODARONE HYDROCHLORIDE [Concomitant]
     Indication: ATRIAL FIBRILLATION
     Route: 048
  12. ASPIRIN LYSINE [Concomitant]
     Route: 048
  13. AMLODIPINE BESYLATE [Concomitant]
     Indication: HYPERTENSION
     Route: 048
  14. PHLOROGLUCINOL AND TRIMETHYLPHLOROGLUCINOL [Concomitant]
     Route: 065
     Dates: start: 20070505
  15. ACETAMINOPHEN [Concomitant]
     Route: 065
     Dates: start: 20070505

REACTIONS (1)
  - PSEUDOMEMBRANOUS COLITIS [None]
